FAERS Safety Report 9476022 (Version 1)
Quarter: 2013Q3

REPORT INFORMATION
  Report Type: Spontaneous
  Country: FR (occurrence: FR)
  Receive Date: 20130826
  Receipt Date: 20130826
  Transmission Date: 20140515
  Serious: Yes (Other)
  Sender: FDA-Public Use
  Company Number: FR-PFIZER INC-2013241057

PATIENT
  Age: 45 Year
  Sex: Male

DRUGS (4)
  1. AMLOR [Suspect]
     Indication: CARDIAC DISORDER
     Dosage: UNK
  2. AMLOR [Suspect]
     Indication: CARDIAC DISCOMFORT
  3. KARDEGIC [Concomitant]
  4. PLAVIX [Concomitant]

REACTIONS (11)
  - Fall [Unknown]
  - Skull fracture [Unknown]
  - Nervous system disorder [Unknown]
  - Headache [Unknown]
  - Emotional disorder [Unknown]
  - Liver disorder [Unknown]
  - Renal disorder [Unknown]
  - Yellow skin [Unknown]
  - Nausea [Unknown]
  - Vertigo [Unknown]
  - Gait disturbance [Unknown]
